FAERS Safety Report 5630771-8 (Version None)
Quarter: 2008Q1

REPORT INFORMATION
  Report Type: 
  Country: None (occurrence: None)
  Receive Date: 20080219
  Receipt Date: 20080206
  Transmission Date: 20080703
  Serious: Yes (Hospitalization)
  Sender: FDA-Public Use
  Company Number: JP-PURDUE-MAG_2008_0000646

PATIENT
  Age: 20 Year
  Sex: Female
  Weight: 50 kg

DRUGS (3)
  1. THEOPHYLLINE [Suspect]
     Indication: NASOPHARYNGITIS
     Route: 048
     Dates: start: 20060501, end: 20060501
  2. DEXTROMETHORPHAN HYDROBROMIDE [Suspect]
     Indication: NASOPHARYNGITIS
     Route: 048
     Dates: start: 20060501, end: 20060501
  3. ACETAMINOPHEN [Suspect]
     Indication: NASOPHARYNGITIS
     Route: 048
     Dates: start: 20060501, end: 20060501

REACTIONS (1)
  - ANAPHYLACTIC REACTION [None]
